FAERS Safety Report 16556233 (Version 1)
Quarter: 2019Q3

REPORT INFORMATION
  Report Type: Spontaneous
  Country: US (occurrence: US)
  Receive Date: 20190710
  Receipt Date: 20190710
  Transmission Date: 20191004
  Serious: Yes (Other)
  Sender: FDA-Public Use
  Company Number: US-AGG-06-2018-0834

PATIENT
  Age: 71 Year
  Sex: Female
  Weight: 72 kg

DRUGS (3)
  1. AGGRASTAT [Suspect]
     Active Substance: TIROFIBAN HYDROCHLORIDE
     Indication: ANTIPLATELET THERAPY
     Route: 040
  2. AGGRASTAT [Suspect]
     Active Substance: TIROFIBAN HYDROCHLORIDE
     Indication: ANTIPLATELET THERAPY
     Dosage: PATIENT HAD REDUCED CREATININE CLEARANCE, HOWEVER REPORTER UNSURE IF  0.075 MCG/KG OR 0.15 MCG/KG
     Route: 041
  3. HEPARIN [Concomitant]
     Active Substance: HEPARIN SODIUM
     Dosage: 50-70 U/KG

REACTIONS (1)
  - Catheter site haemorrhage [Unknown]

NARRATIVE: CASE EVENT DATE: 20180509
